FAERS Safety Report 7532422-4 (Version None)
Quarter: 2011Q2

REPORT INFORMATION
  Report Type: 
  Country: None (occurrence: None)
  Receive Date: 20110608
  Receipt Date: 20110602
  Transmission Date: 20111010
  Serious: Yes (Life-Threatening, Hospitalization)
  Sender: FDA-Public Use
  Company Number: FR-PFIZER INC-2010134298

PATIENT
  Age: 54 Year
  Sex: Male

DRUGS (24)
  1. EMEND [Suspect]
     Dosage: 5 MG, UNK
     Route: 042
     Dates: start: 20100913, end: 20100913
  2. EZETIMIBE/SIMVASTATIN [Concomitant]
  3. POLARAMINE [Suspect]
     Dosage: 170 MG, 1X/DAY
     Route: 042
     Dates: start: 20100913, end: 20100913
  4. EMEND [Suspect]
     Indication: VOMITING
     Dosage: 115 MG, SINGLE, TOTAL DOSE
     Route: 042
     Dates: start: 20100913, end: 20100913
  5. BISOPROLOL [Concomitant]
  6. OXALIPLATIN [Suspect]
     Indication: RECTAL CANCER
     Dosage: 170 MG, SINGLE
     Route: 042
     Dates: start: 20100913, end: 20100913
  7. CALCIUM GLUCONATE [Suspect]
     Indication: ADVERSE DRUG REACTION
     Dosage: 1 G, SINGLE
     Route: 042
     Dates: start: 20100913, end: 20100913
  8. CALCIUM GLUCONATE [Suspect]
     Dosage: 170 MG, 1X/DAY
     Route: 042
     Dates: start: 20100913, end: 20100913
  9. ASPIRIN [Concomitant]
  10. LEUCOVORIN CALCIUM [Suspect]
     Indication: ANAEMIA
     Dosage: 400 MG, SINGLE
     Route: 042
     Dates: start: 20100913, end: 20100913
  11. ERBITUX [Suspect]
     Dosage: 5 MG, UNK
     Route: 042
     Dates: start: 20100913, end: 20100913
  12. MAGNESIUM SULFATE [Suspect]
     Indication: ADVERSE DRUG REACTION
     Dosage: 1500 MG, TOTAL DOSE
     Route: 042
     Dates: start: 20100913, end: 20100913
  13. VALSARTAN [Concomitant]
  14. SOLU-MEDROL [Suspect]
     Dosage: 170 MG, UNK
     Route: 042
     Dates: start: 20100913, end: 20100913
  15. LEUCOVORIN CALCIUM [Suspect]
     Dosage: 170 MG, UNK
     Dates: start: 20100913, end: 20100913
  16. POLARAMINE [Suspect]
     Indication: URTICARIA
     Dosage: 5 MG, SINGLE
     Route: 042
     Dates: start: 20100913, end: 20100913
  17. ERBITUX [Suspect]
     Indication: RECTAL CANCER
     Dosage: 1 G, MONTHLY
     Route: 042
     Dates: start: 20100913, end: 20100913
  18. ERBITUX [Suspect]
     Dosage: 170 MG, 1X/DAY
     Route: 042
     Dates: start: 20100913, end: 20100913
  19. MAGNESIUM SULFATE [Suspect]
     Dosage: 5 MG, UNK
     Route: 042
     Dates: start: 20100913, end: 20100913
  20. MAGNESIUM SULFATE [Suspect]
     Dosage: 170 MG, 1X/DAY
     Route: 042
     Dates: start: 20100913, end: 20100913
  21. SOLU-MEDROL [Suspect]
     Dosage: 60 MG, SINGLE
     Route: 042
     Dates: start: 20100913, end: 20100913
  22. CALCIUM GLUCONATE [Suspect]
     Dosage: 5 MG, UNK
     Route: 042
     Dates: start: 20100913, end: 20100913
  23. EMEND [Suspect]
     Dosage: 170 MG, 1X/DAY
     Route: 042
     Dates: start: 20100913, end: 20100913
  24. GLUCOPHAGE [Concomitant]

REACTIONS (5)
  - OXYGEN SATURATION DECREASED [None]
  - HYPOTENSION [None]
  - CHEST PAIN [None]
  - FALL [None]
  - HYPERHIDROSIS [None]
